FAERS Safety Report 12714541 (Version 6)
Quarter: 2017Q1

REPORT INFORMATION
  Report Type: Report from Study
  Country: US (occurrence: US)
  Receive Date: 20160905
  Receipt Date: 20170131
  Transmission Date: 20170428
  Serious: Yes (Hospitalization, Other)
  Sender: FDA-Public Use
  Company Number: US-GILEAD-2016-0231741

PATIENT
  Age: 40 Year
  Sex: Female
  Weight: 57 kg

DRUGS (5)
  1. AMBRISENTAN [Suspect]
     Active Substance: AMBRISENTAN
     Indication: PULMONARY ARTERIAL HYPERTENSION
     Dosage: 10 MG, QD
     Route: 048
     Dates: start: 20160810
  2. REVATIO [Concomitant]
     Active Substance: SILDENAFIL CITRATE
  3. COUMADIN [Concomitant]
     Active Substance: WARFARIN SODIUM
  4. IMITREX [Concomitant]
     Active Substance: SUMATRIPTAN SUCCINATE
     Dosage: UNK, PRN
  5. IRON [Concomitant]
     Active Substance: IRON
     Dosage: UNK, BID
     Route: 048

REACTIONS (17)
  - Loss of consciousness [Unknown]
  - Condition aggravated [Not Recovered/Not Resolved]
  - Ligament sprain [Unknown]
  - Nocturnal dyspnoea [Unknown]
  - Pulmonary arterial pressure increased [Unknown]
  - Cough [Unknown]
  - Dyspnoea [Not Recovered/Not Resolved]
  - Hypotension [Not Recovered/Not Resolved]
  - Syncope [Unknown]
  - Catheterisation cardiac abnormal [Unknown]
  - Exercise tolerance decreased [Unknown]
  - Chest pain [Not Recovered/Not Resolved]
  - Fatigue [Not Recovered/Not Resolved]
  - Presyncope [Unknown]
  - Syncope [Not Recovered/Not Resolved]
  - Fall [Unknown]
  - Dizziness [Unknown]

NARRATIVE: CASE EVENT DATE: 20160818
